FAERS Safety Report 5011207-7 (Version None)
Quarter: 2006Q2

REPORT INFORMATION
  Report Type: 
  Country: None (occurrence: None)
  Receive Date: 20060404
  Receipt Date: 20060116
  Transmission Date: 20061013
  Serious: No
  Sender: FDA-Public Use
  Company Number: US200601002583

PATIENT
  Age: 71 Year
  Sex: Female

DRUGS (6)
  1. CYMBALTA [Suspect]
     Indication: DEPRESSION
     Dosage: 30 MG., ORAL
     Route: 048
     Dates: start: 20050101, end: 20060113
  2. ELAVIL [Concomitant]
  3. TENORMIN /NEZ/ (ATENOLOL) [Concomitant]
  4. ALDACTAZIDE [Concomitant]
  5. PREMARIN [Concomitant]
  6. AMBIEN [Concomitant]

REACTIONS (11)
  - ASTHENIA [None]
  - BLOOD PRESSURE INCREASED [None]
  - BODY TEMPERATURE INCREASED [None]
  - CHEST PAIN [None]
  - CHILLS [None]
  - FATIGUE [None]
  - FEELING ABNORMAL [None]
  - NEUROPATHY [None]
  - PRURITUS [None]
  - THROAT TIGHTNESS [None]
  - URTICARIA [None]
